FAERS Safety Report 9433749 (Version 2)
Quarter: 2013Q3

REPORT INFORMATION
  Report Type: Spontaneous
  Country: US (occurrence: None)
  Receive Date: 20130729
  Receipt Date: 20130904
  Transmission Date: 20140515
  Serious: Yes (Hospitalization)
  Sender: FDA-Public Use
  Company Number: ACO_37512_2013

PATIENT
  Sex: Male
  Weight: 68 kg

DRUGS (10)
  1. AMPYRA [Suspect]
     Indication: MULTIPLE SCLEROSIS
     Route: 048
     Dates: start: 201004, end: 2010
  2. AMPYRA [Suspect]
     Indication: GAIT DISTURBANCE
     Route: 048
     Dates: start: 201004, end: 2010
  3. ZINC SULFATE (ZINC SULFATE) [Concomitant]
  4. FERROUS SULFATE (FERROUS SULFATE) [Concomitant]
  5. LYRICA (PREGABALIN) [Concomitant]
  6. NITROFURANTOIN (NITROFURANTION) [Concomitant]
  7. SIMVASTATIN (SIMVASTATIN) [Concomitant]
  8. BACLOFEN (BACLOFEN) [Concomitant]
  9. PROPANOLOL (PROPANOLOL) [Concomitant]
  10. METHYLPHENIDATE (METHYLPHENIDATE HYDROCHLORIDE) [Concomitant]

REACTIONS (7)
  - Cardiac valve disease [None]
  - Kidney infection [None]
  - Fall [None]
  - Staphylococcal infection [None]
  - Decubitus ulcer [None]
  - Muscular weakness [None]
  - Drug ineffective [None]
